FAERS Safety Report 15543048 (Version 7)
Quarter: 2020Q4

REPORT INFORMATION
  Report Type: Report from Study
  Country: DE (occurrence: DE)
  Receive Date: 20181023
  Receipt Date: 20201028
  Transmission Date: 20210113
  Serious: Yes (Hospitalization, Other)
  Sender: FDA-Public Use
  Company Number: DE-JNJFOC-20180934878

PATIENT
  Sex: Female
  Weight: 120 kg

DRUGS (7)
  1. SIMPONI [Suspect]
     Active Substance: GOLIMUMAB
     Indication: AXIAL SPONDYLOARTHRITIS
     Route: 058
     Dates: start: 20180830
  2. CANDESARTAN. [Concomitant]
     Active Substance: CANDESARTAN
     Indication: PRE-EXISTING DISEASE
     Route: 065
  3. LIXIANA [Concomitant]
     Active Substance: EDOXABAN TOSYLATE
     Indication: PRE-EXISTING DISEASE
     Route: 065
     Dates: start: 20180124
  4. TRAMABIAN [Concomitant]
     Indication: AXIAL SPONDYLOARTHRITIS
     Route: 065
     Dates: start: 20181211
  5. RAMIPRIL. [Concomitant]
     Active Substance: RAMIPRIL
     Indication: PRE-EXISTING DISEASE
     Route: 065
  6. PANTOPRAZOL [Concomitant]
     Active Substance: PANTOPRAZOLE SODIUM
     Indication: PROPHYLAXIS
     Route: 065
  7. PREDNISOLONE. [Concomitant]
     Active Substance: PREDNISOLONE
     Indication: AXIAL SPONDYLOARTHRITIS
     Route: 065

REACTIONS (5)
  - Dizziness [Recovered/Resolved]
  - Nerve injury [Recovered/Resolved]
  - Back pain [Unknown]
  - Haematochezia [Recovered/Resolved]
  - Oral herpes [Not Recovered/Not Resolved]

NARRATIVE: CASE EVENT DATE: 20180912
